FAERS Safety Report 18229163 (Version 1)
Quarter: 2020Q3

REPORT INFORMATION
  Report Type: Spontaneous
  Country: US (occurrence: US)
  Receive Date: 20200903
  Receipt Date: 20200903
  Transmission Date: 20201103
  Serious: Yes (Other)
  Sender: FDA-Public Use
  Company Number: US-PFIZER INC-2020338047

PATIENT
  Age: 55 Year
  Sex: Female

DRUGS (1)
  1. MOTRIN [Suspect]
     Active Substance: IBUPROFEN
     Dosage: UNK
     Dates: end: 2014

REACTIONS (2)
  - Gastric ulcer [Unknown]
  - Renal disorder [Unknown]
